FAERS Safety Report 17857925 (Version 5)
Quarter: 2021Q1

REPORT INFORMATION
  Report Type: Report from Study
  Country: US (occurrence: US)
  Receive Date: 20200604
  Receipt Date: 20210106
  Transmission Date: 20210419
  Serious: No
  Sender: FDA-Public Use
  Company Number: NVSC2020US155068

PATIENT
  Age: 85 Year
  Sex: Female

DRUGS (1)
  1. ENTRESTO [Suspect]
     Active Substance: SACUBITRIL\VALSARTAN
     Indication: PRODUCT USED FOR UNKNOWN INDICATION
     Dosage: 1 DF, BID
     Route: 048
     Dates: start: 202005

REACTIONS (4)
  - Asthenia [Recovering/Resolving]
  - Post procedural complication [Recovering/Resolving]
  - Back pain [Unknown]
  - Product distribution issue [Unknown]

NARRATIVE: CASE EVENT DATE: 202006
